FAERS Safety Report 17692576 (Version 1)
Quarter: 2020Q2

REPORT INFORMATION
  Report Type: Report from Study
  Country: None (occurrence: NL)
  Receive Date: 20200422
  Receipt Date: 20200422
  Transmission Date: 20200714
  Serious: Yes (Other)
  Sender: FDA-Public Use
  Company Number: NL-ABBVIE-20K-114-3373010-00

PATIENT
  Sex: Male

DRUGS (1)
  1. SYNAGIS [Suspect]
     Active Substance: PALIVIZUMAB
     Indication: ANTIVIRAL PROPHYLAXIS
     Route: 030
     Dates: start: 20200325, end: 20200325

REACTIONS (1)
  - Inguinal hernia [Not Recovered/Not Resolved]
